FAERS Safety Report 4705873-0 (Version None)
Quarter: 2005Q2

REPORT INFORMATION
  Report Type: 
  Country: None (occurrence: None)
  Receive Date: 20050629
  Receipt Date: 20050406
  Transmission Date: 20051028
  Serious: No
  Sender: FDA-Public Use
  Company Number: 05P-163-0296552-00

PATIENT
  Age: 62 Year
  Sex: Female
  Weight: 118 kg

DRUGS (5)
  1. HUMIRA [Suspect]
     Indication: RHEUMATOID ARTHRITIS
     Dosage: 40 MG, 1 IN 1 WK, SUBCUTANEOUS
     Route: 058
     Dates: start: 20041201, end: 20050301
  2. PREDNISONE TAB [Concomitant]
  3. LOMOTIL [Concomitant]
  4. MIRTAZAPINE [Concomitant]
  5. LORAZEPAM [Concomitant]

REACTIONS (2)
  - BACK PAIN [None]
  - CELLULITIS [None]
